FAERS Safety Report 6302052-0 (Version None)
Quarter: 2009Q3

REPORT INFORMATION
  Report Type: 
  Country: None (occurrence: None)
  Receive Date: 20090807
  Receipt Date: 20090629
  Transmission Date: 20100115
  Serious: Yes (Hospitalization, Other)
  Sender: FDA-Public Use
  Company Number: JP-ABBOTT-01P-087-0112984-00

PATIENT
  Sex: Male

DRUGS (27)
  1. NORVIR [Suspect]
     Indication: HIV INFECTION
     Route: 048
     Dates: start: 19991101, end: 20001108
  2. NORVIR [Suspect]
     Route: 048
     Dates: start: 20001116, end: 20040408
  3. NORVIR [Suspect]
     Route: 048
     Dates: start: 20040409, end: 20070607
  4. KALETRA [Suspect]
     Indication: HIV INFECTION
     Route: 048
     Dates: start: 20070608, end: 20070625
  5. KALETRA [Suspect]
     Route: 048
     Dates: start: 20070626
  6. LAMIVUDINE [Suspect]
     Indication: HIV INFECTION
     Route: 048
     Dates: end: 19991001
  7. STAVUDINE [Suspect]
     Indication: HIV INFECTION
     Route: 048
     Dates: end: 19991001
  8. SAQUINAVIR [Suspect]
     Indication: HIV INFECTION
     Route: 048
     Dates: end: 19991001
  9. ABACAVIR SULFATE [Suspect]
     Indication: HIV INFECTION
     Route: 048
     Dates: start: 19991001, end: 20001108
  10. ABACAVIR SULFATE [Suspect]
     Route: 048
     Dates: start: 20011101, end: 20021108
  11. ABACAVIR SULFATE [Suspect]
     Route: 048
     Dates: start: 20021116, end: 20070316
  12. AMPRENAVIR [Suspect]
     Indication: HIV INFECTION
     Route: 048
     Dates: start: 19991101, end: 20001108
  13. AMPRENAVIR [Suspect]
     Route: 048
     Dates: start: 20001116, end: 20040311
  14. EFAVIRENZ [Suspect]
     Indication: HIV INFECTION
     Route: 048
     Dates: start: 19991001, end: 20001108
  15. EFAVIRENZ [Suspect]
     Route: 048
     Dates: start: 20011101, end: 20021108
  16. EFAVIRENZ [Suspect]
     Route: 048
     Dates: start: 20021116, end: 20070316
  17. EFAVIRENZ [Suspect]
     Route: 048
     Dates: start: 20070608
  18. ATAZANAVIR [Suspect]
     Indication: DRUG USE FOR UNKNOWN INDICATION
     Dates: start: 20040312, end: 20040408
  19. ATAZANAVIR [Suspect]
     Route: 048
     Dates: start: 20040409
  20. SULFAMETHOXAZOLE AND TRIMETHOPRIM [Concomitant]
     Indication: ANTIFUNGAL PROPHYLAXIS
     Route: 048
     Dates: start: 19991101, end: 20001108
  21. SULFAMETHOXAZOLE AND TRIMETHOPRIM [Concomitant]
     Route: 048
     Dates: start: 20001116
  22. ALLOPURINOL [Concomitant]
     Indication: HYPERURICAEMIA
     Route: 048
     Dates: start: 19991101, end: 20001108
  23. ALLOPURINOL [Concomitant]
     Route: 048
     Dates: start: 20001116, end: 20040905
  24. AZITHROMYCIN HYDRATE [Concomitant]
     Indication: BACTERIAL INFECTION
     Route: 048
     Dates: start: 19991101, end: 20000712
  25. RANITIDINE [Concomitant]
     Indication: PROPHYLAXIS AGAINST GASTROINTESTINAL ULCER
     Dates: start: 20020723, end: 20040806
  26. ABACAVIR SULFATE/LAMIVUDINE [Concomitant]
     Indication: HIV INFECTION
     Route: 048
     Dates: start: 20070317, end: 20070607
  27. EMTRICITABINE/TENOFOVIR [Concomitant]
     Indication: DRUG USE FOR UNKNOWN INDICATION

REACTIONS (4)
  - GAMMA-GLUTAMYLTRANSFERASE INCREASED [None]
  - HEPATIC STEATOSIS [None]
  - HYPERLIPIDAEMIA [None]
  - LYMPHOMA [None]
